FAERS Safety Report 5680670-0 (Version None)
Quarter: 2008Q1

REPORT INFORMATION
  Report Type: 
  Country: None (occurrence: None)
  Receive Date: 20080326
  Receipt Date: 20070907
  Transmission Date: 20080703
  Serious: No
  Sender: FDA-Public Use
  Company Number: US-BAUSCH-2007BL003223

PATIENT
  Age: 36 Year
  Sex: Female

DRUGS (2)
  1. LOTEMAX [Suspect]
     Indication: GIANT PAPILLARY CONJUNCTIVITIS
     Route: 047
     Dates: start: 20070823, end: 20070906
  2. ORAL CONTRACEPTIVE NOS [Concomitant]
     Indication: CONTRACEPTION

REACTIONS (3)
  - CORNEAL DISORDER [None]
  - EYE PRURITUS [None]
  - VISUAL ACUITY REDUCED [None]
